FAERS Safety Report 15254370 (Version 1)
Quarter: 2018Q3

REPORT INFORMATION
  Report Type: Spontaneous
  Country: JP (occurrence: JP)
  Receive Date: 20180808
  Receipt Date: 20180808
  Transmission Date: 20181010
  Serious: Yes (Other)
  Sender: FDA-Public Use
  Company Number: JP-009507513-1807JPN001335J

PATIENT
  Age: 69 Year
  Sex: Female

DRUGS (2)
  1. VANCOMYCIN [Concomitant]
     Active Substance: VANCOMYCIN
     Dosage: UNK
     Route: 065
  2. ZINPLAVA [Suspect]
     Active Substance: BEZLOTOXUMAB
     Indication: INFECTION PROPHYLAXIS
     Dosage: UNK
     Route: 041
     Dates: start: 20180615

REACTIONS (1)
  - Clostridium difficile infection [Unknown]
